FAERS Safety Report 7548264-X (Version None)
Quarter: 2011Q2

REPORT INFORMATION
  Report Type: 
  Country: None (occurrence: None)
  Receive Date: 20110615
  Receipt Date: 20110613
  Transmission Date: 20111010
  Serious: No
  Sender: FDA-Public Use
  Company Number: US-PFIZER INC-2011129089

PATIENT
  Sex: Female
  Weight: 68 kg

DRUGS (5)
  1. SYNTHROID [Concomitant]
     Indication: HYPOTHYROIDISM
     Dosage: UNK
  2. VITAMIN E [Concomitant]
     Dosage: UNK
  3. LYRICA [Suspect]
     Indication: FIBROMYALGIA
     Dosage: 75 MG, 1X/DAY
     Route: 048
     Dates: start: 20110610, end: 20110610
  4. OMEPRAZOLE [Concomitant]
     Dosage: UNK
  5. MOBIC [Concomitant]
     Dosage: UNK

REACTIONS (4)
  - DIZZINESS [None]
  - FATIGUE [None]
  - SOMNOLENCE [None]
  - NAUSEA [None]
